FAERS Safety Report 23028274 (Version 4)
Quarter: 2023Q4

REPORT INFORMATION
  Report Type: Spontaneous
  Country: US (occurrence: US)
  Receive Date: 20231004
  Receipt Date: 20231213
  Transmission Date: 20240109
  Serious: Yes (Other)
  Sender: FDA-Public Use
  Company Number: US-ORGANON-O2309USA002445

PATIENT
  Age: 39 Year
  Sex: Female
  Weight: 57.596 kg

DRUGS (3)
  1. NEXPLANON [Suspect]
     Active Substance: ETONOGESTREL
     Indication: Contraception
     Dosage: 1 IMPLANT 68 MG FOR 3 YEARS IN LEFT ARM
     Route: 059
     Dates: start: 20170920
  2. NEXPLANON [Suspect]
     Active Substance: ETONOGESTREL
     Indication: Contraception
     Dosage: 1 IMPLANT 68 MG FOR 3 YEARS IN LEFT ARM
     Route: 059
     Dates: start: 20200920, end: 20230913
  3. NEXPLANON [Concomitant]
     Active Substance: ETONOGESTREL
     Indication: Contraception
     Dosage: 1 IMPLANT
     Route: 059
     Dates: start: 201410, end: 20170920

REACTIONS (9)
  - Complication of device removal [Not Recovered/Not Resolved]
  - Device deployment issue [Not Recovered/Not Resolved]
  - Device issue [Not Recovered/Not Resolved]
  - Complication associated with device [Not Recovered/Not Resolved]
  - Device use issue [Unknown]
  - Incorrect product administration duration [Unknown]
  - Device placement issue [Not Recovered/Not Resolved]
  - Overdose [Unknown]
  - No adverse event [Unknown]

NARRATIVE: CASE EVENT DATE: 20170920
